FAERS Safety Report 12586419 (Version 1)
Quarter: 2016Q3

REPORT INFORMATION
  Report Type: Spontaneous
  Country: US (occurrence: None)
  Receive Date: 20160722
  Receipt Date: 20160722
  Transmission Date: 20161109
  Serious: Yes (Hospitalization)
  Sender: FDA-Public Use
  Company Number: None

PATIENT
  Age: 68 Year
  Sex: Female
  Weight: 52.3 kg

DRUGS (4)
  1. METHOTREXATE. [Suspect]
     Active Substance: METHOTREXATE
     Dates: end: 20160517
  2. PROCARBAZINE [Concomitant]
     Active Substance: PROCARBAZINE
     Dates: end: 20160509
  3. RITUXIMAB (MOAB C2B8 ANTI CD20, CHIMERIC) [Concomitant]
     Active Substance: RITUXIMAB
     Dates: end: 20160516
  4. VINCRISTINE SULFATE. [Suspect]
     Active Substance: VINCRISTINE SULFATE
     Dates: end: 20160114

REACTIONS (9)
  - Vertigo [None]
  - Hyponatraemia [None]
  - Urinary retention [None]
  - Dizziness [None]
  - Gait disturbance [None]
  - Disease progression [None]
  - Headache [None]
  - Pneumonia [None]
  - Visual impairment [None]

NARRATIVE: CASE EVENT DATE: 20160618
